FAERS Safety Report 7640950-6 (Version None)
Quarter: 2011Q3

REPORT INFORMATION
  Report Type: 
  Country: None (occurrence: None)
  Receive Date: 20110727
  Receipt Date: 20110727
  Transmission Date: 20111222
  Serious: Yes (Life-Threatening, Hospitalization, Disabling, Other)
  Sender: FDA-Public Use
  Company Number: None

PATIENT
  Sex: Female
  Weight: 90.7194 kg

DRUGS (2)
  1. COLCHICINE [Suspect]
     Indication: GOUT
     Dates: start: 20100804
  2. ALLOPURINOL [Suspect]

REACTIONS (1)
  - HYPERSENSITIVITY [None]
